FAERS Safety Report 11511264 (Version 2)
Quarter: 2015Q3

REPORT INFORMATION
  Report Type: Report from Study
  Country: US (occurrence: US)
  Receive Date: 20150915
  Receipt Date: 20150925
  Transmission Date: 20151125
  Serious: Yes (Death, Hospitalization)
  Sender: FDA-Public Use
  Company Number: US-ACTELION-A-US2015-123834

PATIENT
  Age: 62 Year
  Sex: Female

DRUGS (1)
  1. VELETRI [Suspect]
     Active Substance: EPOPROSTENOL
     Indication: PULMONARY ARTERIAL HYPERTENSION
     Dosage: 10.5 NG/KG, PER MIN
     Route: 042
     Dates: start: 20150604, end: 20150916

REACTIONS (6)
  - Cardio-respiratory arrest [Unknown]
  - Dialysis [Unknown]
  - Death [Fatal]
  - Malaise [Unknown]
  - Cardiac failure congestive [Unknown]
  - Life support [Unknown]

NARRATIVE: CASE EVENT DATE: 20150916
